FAERS Safety Report 19605937 (Version 1)
Quarter: 2021Q3

REPORT INFORMATION
  Report Type: Spontaneous
  Country: FR (occurrence: FR)
  Receive Date: 20210723
  Receipt Date: 20210723
  Transmission Date: 20211014
  Serious: Yes (Other)
  Sender: FDA-Public Use
  Company Number: FR-ROCHE-2876521

PATIENT
  Sex: Male

DRUGS (1)
  1. HEMLIBRA [Suspect]
     Active Substance: EMICIZUMAB-KXWH
     Indication: FACTOR VIII DEFICIENCY
     Dosage: 4 WEEKS THEN 60 MG EVERY 15 DAYS STARTING ON THE 5TH WEEK OF TREATMENT.
     Route: 065

REACTIONS (2)
  - Off label use [Unknown]
  - Haemarthrosis [Unknown]
